FAERS Safety Report 9472083 (Version 1)
Quarter: 2013Q3

REPORT INFORMATION
  Report Type: Spontaneous
  Country: US (occurrence: US)
  Receive Date: 20130823
  Receipt Date: 20130823
  Transmission Date: 20140515
  Serious: No
  Sender: FDA-Public Use
  Company Number: US-BIOGENIDEC-2013BI079231

PATIENT
  Sex: Male
  Weight: 77 kg

DRUGS (4)
  1. AVONEX [Suspect]
     Indication: PRODUCT USED FOR UNKNOWN INDICATION
     Route: 030
  2. AMPYRA [Concomitant]
     Indication: GAIT DISTURBANCE
     Route: 048
     Dates: start: 201202, end: 2012
  3. LIPITOR [Concomitant]
  4. WARFARIN SODIUM [Concomitant]

REACTIONS (2)
  - Influenza [Recovered/Resolved]
  - Dizziness [Recovered/Resolved]
